FAERS Safety Report 21364462 (Version 1)
Quarter: 2022Q3

REPORT INFORMATION
  Report Type: Spontaneous
  Country: US (occurrence: US)
  Receive Date: 20220922
  Receipt Date: 20220922
  Transmission Date: 20221027
  Serious: No
  Sender: FDA-Public Use
  Company Number: US-GLENMARK PHARMACEUTICALS-2022GMK072456

PATIENT

DRUGS (10)
  1. ZONISAMIDE [Suspect]
     Active Substance: ZONISAMIDE
     Indication: Migraine prophylaxis
     Dosage: 1 DOSAGE FORM, QW
     Route: 048
     Dates: start: 20220419, end: 20220426
  2. ZONISAMIDE [Suspect]
     Active Substance: ZONISAMIDE
     Dosage: 2 DOSAGE FORM, QW
     Route: 048
     Dates: start: 20220427, end: 20220504
  3. ZONISAMIDE [Suspect]
     Active Substance: ZONISAMIDE
     Dosage: 3 DOSAGE FORM, QW
     Route: 048
     Dates: start: 20220505, end: 202205
  4. ZONISAMIDE [Suspect]
     Active Substance: ZONISAMIDE
     Dosage: 4 DOSAGE FORM, QW
     Route: 048
     Dates: start: 202205, end: 202205
  5. ZONISAMIDE [Suspect]
     Active Substance: ZONISAMIDE
     Indication: Migraine prophylaxis
     Dosage: UNK UNK, OD
     Route: 048
     Dates: start: 202205, end: 20220523
  6. CITALOPRAM [Concomitant]
     Active Substance: CITALOPRAM HYDROBROMIDE
     Indication: Depression
     Dosage: 100 MILLIGRAM, OD
     Route: 048
  7. LAMICTAL [Concomitant]
     Active Substance: LAMOTRIGINE
     Indication: Bipolar disorder
     Dosage: 200 MILLIGRAM, OD
     Route: 048
  8. SEROQUEL [Concomitant]
     Active Substance: QUETIAPINE FUMARATE
     Indication: Insomnia
     Dosage: UNK, ONCE OR TWICE A DAY AT THE SAME TIME,
     Route: 048
     Dates: start: 20220120
  9. ATIVAN [Concomitant]
     Active Substance: LORAZEPAM
     Indication: Anxiety
     Dosage: PRN AS NEEDED (UP TO 3 TABLETS),
     Route: 048
     Dates: start: 20210811
  10. LOSARTAN [Concomitant]
     Active Substance: LOSARTAN
     Indication: Hypertension
     Dosage: UNK UNK, OD
     Route: 065
     Dates: start: 20210702

REACTIONS (5)
  - Product use in unapproved indication [Unknown]
  - Recalled product administered [Unknown]
  - Urticaria [Not Recovered/Not Resolved]
  - Nausea [Unknown]
  - Vomiting [Recovered/Resolved]

NARRATIVE: CASE EVENT DATE: 20220101
